FAERS Safety Report 26072060 (Version 1)
Quarter: 2025Q4

REPORT INFORMATION
  Report Type: Spontaneous
  Country: US (occurrence: None)
  Receive Date: 20251120
  Receipt Date: 20251120
  Transmission Date: 20260117
  Serious: No
  Sender: FDA-CTU
  Company Number: None

PATIENT
  Age: 41 Year
  Sex: Female

DRUGS (1)
  1. FOSAPREPITANT [Suspect]
     Active Substance: FOSAPREPITANT
     Dates: start: 20251013, end: 20251013

REACTIONS (4)
  - Flushing [None]
  - Dyspnoea [None]
  - Pruritus [None]
  - Hypoaesthesia oral [None]

NARRATIVE: CASE EVENT DATE: 20251013
